FAERS Safety Report 9530202 (Version 2)
Quarter: 2013Q4

REPORT INFORMATION
  Report Type: Spontaneous
  Country: IT (occurrence: IT)
  Receive Date: 20130917
  Receipt Date: 20131002
  Transmission Date: 20140711
  Serious: Yes (Hospitalization)
  Sender: FDA-Public Use
  Company Number: IT-FRI-1000048796

PATIENT
  Age: 50 Year
  Sex: Male

DRUGS (1)
  1. NEBIVOLOL [Suspect]
     Indication: ESSENTIAL HYPERTENSION
     Dosage: 5 MG
     Dates: start: 20040112, end: 20130813

REACTIONS (1)
  - Pulmonary sarcoidosis [Not Recovered/Not Resolved]
